FAERS Safety Report 16819568 (Version 1)
Quarter: 2019Q3

REPORT INFORMATION
  Report Type: Report from Study
  Country: US (occurrence: US)
  Receive Date: 20190917
  Receipt Date: 20190917
  Transmission Date: 20191005
  Serious: Yes (Hospitalization)
  Sender: FDA-Public Use
  Company Number: US-ACTELION-A-US2019-193031

PATIENT
  Sex: Female
  Weight: 47.17 kg

DRUGS (2)
  1. ADCIRCA [Concomitant]
     Active Substance: TADALAFIL
  2. TRACLEER [Suspect]
     Active Substance: BOSENTAN
     Indication: PULMONARY HYPERTENSION
     Dosage: 62.5 MG, BID
     Route: 048

REACTIONS (7)
  - Hospitalisation [Unknown]
  - Developmental delay [Unknown]
  - Stress [Unknown]
  - Unevaluable event [Unknown]
  - Haematocrit increased [Unknown]
  - Haemoptysis [Unknown]
  - Hypercoagulation [Unknown]
